FAERS Safety Report 5867088-2 (Version None)
Quarter: 2008Q3

REPORT INFORMATION
  Report Type: 
  Country: None (occurrence: None)
  Receive Date: 20080902
  Receipt Date: 20080827
  Transmission Date: 20090109
  Serious: Yes (Other)
  Sender: FDA-Public Use
  Company Number: B0535224A

PATIENT
  Age: 59 Year
  Sex: Female

DRUGS (2)
  1. ELONTRIL [Suspect]
     Indication: DEPRESSION
     Route: 048
     Dates: start: 20080716
  2. LEVOCETIRIZINE [Concomitant]
     Route: 065

REACTIONS (1)
  - PETECHIAE [None]
